FAERS Safety Report 16687016 (Version 1)
Quarter: 2019Q3

REPORT INFORMATION
  Report Type: Spontaneous
  Country: VN (occurrence: VN)
  Receive Date: 20190809
  Receipt Date: 20190809
  Transmission Date: 20191004
  Serious: No
  Sender: FDA-Public Use
  Company Number: VN-ROCHE-2340020

PATIENT
  Age: 55 Year
  Sex: Male

DRUGS (8)
  1. XELODA [Suspect]
     Active Substance: CAPECITABINE
     Indication: COLON CANCER METASTATIC
     Dosage: 850 MG TWICE DAILY FOR 2 WEEKS FROM DAY 1 TO DAY 14, AS A PART OF CAPEOX ADJUVANT?CHEMOTHERAPY
     Route: 048
     Dates: start: 2017, end: 201803
  2. AVASTIN [Suspect]
     Active Substance: BEVACIZUMAB
     Indication: CHEMOTHERAPY
  3. IRINOTECAN [Suspect]
     Active Substance: IRINOTECAN
     Indication: COLON CANCER
     Dosage: AS A PART OF XELIRI + AVASTIN REGIMEN
     Route: 042
     Dates: start: 2018, end: 201905
  4. AVASTIN [Suspect]
     Active Substance: BEVACIZUMAB
     Indication: COLON CANCER METASTATIC
     Dosage: AS A PART OF XELIRI + AVASTIN REGIMEN
     Route: 042
     Dates: start: 2018, end: 201905
  5. OXALIPLATIN. [Suspect]
     Active Substance: OXALIPLATIN
     Indication: COLON CANCER
     Dosage: AS A PART OF CAPEOX ADJUVANT CHEMOTHERAPY
     Route: 041
     Dates: start: 2017, end: 201805
  6. OXALIPLATIN. [Suspect]
     Active Substance: OXALIPLATIN
     Indication: CHEMOTHERAPY
  7. XELODA [Suspect]
     Active Substance: CAPECITABINE
     Indication: CHEMOTHERAPY
     Dosage: 850 MG TWICE DAILY FOR 2 WEEKS FROM DAY 1 TO DAY 14, AS A PART OF XELIRI + AVASTIN?REGIMEN
     Route: 048
     Dates: start: 2018, end: 201905
  8. IRINOTECAN [Suspect]
     Active Substance: IRINOTECAN
     Indication: CHEMOTHERAPY

REACTIONS (3)
  - Off label use [Unknown]
  - Product use in unapproved indication [Unknown]
  - No adverse event [Unknown]
